FAERS Safety Report 18199108 (Version 2)
Quarter: 2020Q3

REPORT INFORMATION
  Report Type: Spontaneous
  Country: GB (occurrence: GB)
  Receive Date: 20200826
  Receipt Date: 20200916
  Transmission Date: 20201103
  Serious: Yes (Death)
  Sender: FDA-Public Use
  Company Number: GB-TEVA-2020-GB-1820216

PATIENT
  Age: 57 Year
  Sex: Male
  Weight: 55.4 kg

DRUGS (22)
  1. FLUCLOXACILLIN [Concomitant]
     Active Substance: FLUCLOXACILLIN
     Dosage: UNIT DOSE:4000MILLIGRAM
     Dates: start: 20200219
  2. PREGABALIN. [Concomitant]
     Active Substance: PREGABALIN
     Indication: NEUROPATHY PERIPHERAL
     Dosage: 600 MILLIGRAM
  3. NITROMIN [Concomitant]
     Dosage: SPRAY ONE OR TWO DOSES UNDER TONGUE AND THEN CLOSE MOUTH AS DIRECTED:UNIT DOSE:400MICROGRAM
  4. TINZAPARIN [Concomitant]
     Active Substance: TINZAPARIN
     Indication: ANTICOAGULANT THERAPY
  5. CLOPIDOGREL [Concomitant]
     Active Substance: CLOPIDOGREL BISULFATE
     Indication: CORONARY ARTERY DISEASE
     Dosage: 75MILLIGRAM:LIFELONG
  6. TIOTROPIUM BROMIDE [Concomitant]
     Active Substance: TIOTROPIUM BROMIDE
     Indication: CHRONIC OBSTRUCTIVE PULMONARY DISEASE
     Dosage: QUANTITY 1 X 60, FOR INHALATION CARTRIDGE WITH DEVICE CFC FREE:PUFFS
  7. AMLODIPINE [Concomitant]
     Active Substance: AMLODIPINE BESYLATE
     Indication: HYPOTENSION
     Dosage: 5MILLIGRAM
  8. CO?AMOXICLAV [Concomitant]
     Active Substance: AMOXICILLIN\CLAVULANATE POTASSIUM
     Dosage: 500MG/125MG:UNIT DOSE:3DOSAGEFORM
     Dates: start: 20190424
  9. VOLTAROL EMULGEL P [Concomitant]
     Active Substance: DICLOFENAC DIETHYLAMINE
     Dosage: UNIT DOSE:2ML:100 GRAMS
  10. METHADONE [Suspect]
     Active Substance: METHADONE HYDROCHLORIDE
     Indication: DRUG DEPENDENCE
     Dosage: 20 MG
     Route: 048
  11. ACETYLSALICYLIC ACID [Concomitant]
     Active Substance: ASPIRIN
     Indication: CORONARY ARTERY DISEASE
     Dosage: 75 MILLIGRAM
  12. RITONAVIR. [Suspect]
     Active Substance: RITONAVIR
     Indication: HIV INFECTION
     Dosage: 100 MG
     Route: 048
     Dates: start: 20180904
  13. CLENIL MODULITE [Concomitant]
     Active Substance: BECLOMETHASONE DIPROPIONATE
     Indication: CHRONIC OBSTRUCTIVE PULMONARY DISEASE
     Dosage: INHALER. QUANTITY 1 X 200 DOSE:PUFFS VIA SPACER:UNIT DOSE:200 MICROGRAM
  14. ZOPICLONE [Concomitant]
     Active Substance: ZOPICLONE
     Indication: INSOMNIA
     Dosage: 7.5 MILLIGRAM DAILY; NIGHT
  15. DIAZEPAM. [Concomitant]
     Active Substance: DIAZEPAM
     Indication: ANXIETY
     Dosage: 10 MILLIGRAM DAILY; NIGHT
  16. CLARITHROMYCIN. [Suspect]
     Active Substance: CLARITHROMYCIN
     Indication: CELLULITIS
     Dosage: 1000 MG
     Route: 048
     Dates: start: 20200226
  17. ACICLOVIR [Concomitant]
     Active Substance: ACYCLOVIR
     Dosage: UNIT DOSE:4000MILLIGRAM
     Dates: start: 20200216
  18. LIDOCAINE. [Concomitant]
     Active Substance: LIDOCAINE
     Dosage: UP TO 12 HOURS FOLLOWED BY A 12 HOUR PLASTER?FREE PERIOD AS DIRECTED.:UNIT DOSE:1DOSAGEFORM
     Dates: start: 20190916
  19. MONOMIL XL [Concomitant]
     Active Substance: ISOSORBIDE MONONITRATE
     Indication: ANGINA PECTORIS
     Dosage: 60 MILLIGRAM DAILY; MORNING
  20. XYLOCAINE WITH EPINEPHRINE [Concomitant]
     Active Substance: EPINEPHRINE BITARTRATE\LIDOCAINE HYDROCHLORIDE
     Dosage: 100MICROGRAMS/20ML (1 IN 200,00) TO BE ADMINISTERED BY A DOCTOR.:UNIT DOSE:0.13 DOSAGEFORM
     Dates: start: 20190828
  21. ATAZANAVIR. [Suspect]
     Active Substance: ATAZANAVIR
     Indication: HIV INFECTION
     Dosage: 300 MG
     Route: 048
     Dates: start: 20180924
  22. DESCOVY [Concomitant]
     Active Substance: EMTRICITABINE\TENOFOVIR ALAFENAMIDE FUMARATE
     Dosage: 200 MILLIGRAM

REACTIONS (1)
  - Arrhythmia [Fatal]

NARRATIVE: CASE EVENT DATE: 20200226
